FAERS Safety Report 7230841-7 (Version None)
Quarter: 2011Q1

REPORT INFORMATION
  Report Type: 
  Country: None (occurrence: None)
  Receive Date: 20110107
  Receipt Date: 20101223
  Transmission Date: 20110831
  Serious: Yes (Other)
  Sender: FDA-Public Use
  Company Number: 024730

PATIENT

DRUGS (6)
  1. BENSERAZIDE [Concomitant]
  2. LEVODOPA [Concomitant]
  3. CARBIDOPA [Concomitant]
  4. LEVETIRACETAM [Suspect]
     Indication: DYSKINESIA
     Dosage: SEE IMAGE
  5. ENTACAPONE [Concomitant]
  6. PRAMIPEXOLE [Concomitant]

REACTIONS (4)
  - MUSCLE RIGIDITY [None]
  - DRUG INEFFECTIVE [None]
  - UNEVALUABLE EVENT [None]
  - INFLUENZA LIKE ILLNESS [None]
